FAERS Safety Report 8335070-1 (Version None)
Quarter: 2012Q2

REPORT INFORMATION
  Report Type: 
  Country: None (occurrence: None)
  Receive Date: 20120503
  Receipt Date: 20100421
  Transmission Date: 20120825
  Serious: No
  Sender: FDA-Public Use
  Company Number: US-TEVA-2010002330

PATIENT
  Age: 23 Year
  Sex: Male

DRUGS (1)
  1. NUVIGIL [Suspect]
     Indication: SLEEP DISORDER
     Route: 048

REACTIONS (1)
  - GASTROINTESTINAL DISORDER [None]
